FAERS Safety Report 7250153-5 (Version None)
Quarter: 2011Q1

REPORT INFORMATION
  Report Type: 
  Country: None (occurrence: None)
  Receive Date: 20110128
  Receipt Date: 20101217
  Transmission Date: 20110831
  Serious: Yes (Other)
  Sender: FDA-Public Use
  Company Number: US-BAYER-201029572NA

PATIENT
  Sex: Female

DRUGS (4)
  1. YAZ [Suspect]
     Indication: PRODUCT USED FOR UNKNOWN INDICATION
     Route: 048
     Dates: start: 20070801, end: 20080515
  2. BACTRIM [Concomitant]
     Indication: ACNE
     Dosage: UNK
     Dates: start: 20010101, end: 20060101
  3. YASMIN [Suspect]
     Indication: PRODUCT USED FOR UNKNOWN INDICATION
     Dosage: UNK UNK, UNK
     Route: 048
     Dates: start: 20040801, end: 20060815
  4. ISOTRETINOIN [Concomitant]
     Indication: ACNE
     Dosage: UNK
     Dates: start: 20070701

REACTIONS (1)
  - PULMONARY EMBOLISM [None]
